FAERS Safety Report 25290728 (Version 1)
Quarter: 2025Q2

REPORT INFORMATION
  Report Type: Spontaneous
  Country: US (occurrence: US)
  Receive Date: 20250510
  Receipt Date: 20250510
  Transmission Date: 20250717
  Serious: No
  Sender: SANOFI AVENTIS
  Company Number: US-SA-2025SA113890

PATIENT
  Age: 62 Year
  Sex: Female
  Weight: 115.45 kg

DRUGS (19)
  1. DUPIXENT [Suspect]
     Active Substance: DUPILUMAB
     Indication: Asthma
     Dosage: 300 MG, QOW
     Route: 058
  2. EZETIMIBE [Concomitant]
     Active Substance: EZETIMIBE
  3. LINZESS [Concomitant]
     Active Substance: LINACLOTIDE
  4. SENNA S [Concomitant]
     Active Substance: DOCUSATE SODIUM\SENNOSIDES
  5. VITAMINS [Concomitant]
     Active Substance: VITAMINS
  6. MELATONIN [Concomitant]
     Active Substance: MELATONIN
  7. CITRACAL + D3 [Concomitant]
  8. VENTOLIN HFA [Concomitant]
     Active Substance: ALBUTEROL SULFATE
  9. SINGULAIR [Concomitant]
     Active Substance: MONTELUKAST SODIUM
  10. LIPITOR [Concomitant]
     Active Substance: ATORVASTATIN CALCIUM
  11. MELOXICAM [Concomitant]
     Active Substance: MELOXICAM
  12. METHOCARBAMOL [Concomitant]
     Active Substance: METHOCARBAMOL
  13. LEVOTHYROXINE SODIUM [Concomitant]
     Active Substance: LEVOTHYROXINE SODIUM
  14. LASIX [Concomitant]
     Active Substance: FUROSEMIDE
  15. ESTRADIOL [Concomitant]
     Active Substance: ESTRADIOL
  16. BELBUCA [Concomitant]
     Active Substance: BUPRENORPHINE HYDROCHLORIDE
  17. ATENOLOL [Concomitant]
     Active Substance: ATENOLOL
  18. ASTEPRO [Concomitant]
     Active Substance: AZELASTINE HYDROCHLORIDE
  19. ADVAIR HFA [Concomitant]
     Active Substance: FLUTICASONE PROPIONATE\SALMETEROL XINAFOATE

REACTIONS (4)
  - Nausea [Unknown]
  - Dizziness [Unknown]
  - Blood pressure abnormal [Unknown]
  - Medical diet [Unknown]

NARRATIVE: CASE EVENT DATE: 20250101
